FAERS Safety Report 5027101-1 (Version None)
Quarter: 2006Q2

REPORT INFORMATION
  Report Type: 
  Country: None (occurrence: None)
  Receive Date: 20060609
  Receipt Date: 20060525
  Transmission Date: 20061013
  Serious: Yes (Other)
  Sender: FDA-Public Use
  Company Number: 2006-143499-NL

PATIENT
  Age: 21 Year
  Sex: Female

DRUGS (1)
  1. NUVARING [Suspect]
     Indication: CONTRACEPTION
     Dosage: VAGINAL, 3 WEEKS IN, 1 WEEK OUT
     Dates: start: 20060101

REACTIONS (6)
  - COLPOSCOPY [None]
  - CONTRACEPTIVE DEVICE COMPLICATION [None]
  - DEVICE MIGRATION [None]
  - FOREIGN BODY TRAUMA [None]
  - PROCEDURAL COMPLICATION [None]
  - VOMITING [None]
